FAERS Safety Report 21788538 (Version 1)
Quarter: 2022Q4

REPORT INFORMATION
  Report Type: Spontaneous
  Country: NL (occurrence: NL)
  Receive Date: 20221228
  Receipt Date: 20221228
  Transmission Date: 20230112
  Serious: Yes (Other)
  Sender: FDA-Public Use
  Company Number: None

PATIENT
  Sex: Female
  Weight: 83.5 kg

DRUGS (1)
  1. SIMVASTATIN [Suspect]
     Active Substance: SIMVASTATIN
     Indication: Hypercholesterolaemia
     Dosage: 1 DOSAGE FORMS DAILY; TABLET FO 40MG / BRAND NAME NOT SPECIFIED
     Dates: start: 20220719, end: 20221120

REACTIONS (8)
  - Haemorrhage [Unknown]
  - Diabetes mellitus [Recovering/Resolving]
  - Mucosal dryness [Unknown]
  - Haematoma [Unknown]
  - Libido decreased [Recovering/Resolving]
  - Myalgia [Recovering/Resolving]
  - Liver function test increased [Recovering/Resolving]
  - Stomatitis [Recovering/Resolving]
